FAERS Safety Report 25031929 (Version 1)
Quarter: 2025Q1

REPORT INFORMATION
  Report Type: Spontaneous
  Country: US (occurrence: US)
  Receive Date: 20250303
  Receipt Date: 20250303
  Transmission Date: 20250408
  Serious: No
  Sender: DBL GROUP
  Company Number: US-DBL Pharmaceuticals, Inc.-2172110

PATIENT

DRUGS (1)
  1. METHOCARBAMOL [Suspect]
     Active Substance: METHOCARBAMOL
     Indication: Fibromyalgia

REACTIONS (1)
  - Drug ineffective for unapproved indication [Unknown]
